FAERS Safety Report 10056834 (Version 1)
Quarter: 2014Q2

REPORT INFORMATION
  Report Type: Spontaneous
  Country: FR (occurrence: FR)
  Receive Date: 20140403
  Receipt Date: 20140403
  Transmission Date: 20141212
  Serious: Yes (Hospitalization, Other)
  Sender: FDA-Public Use
  Company Number: FR-ASTRAZENECA-2014SE21877

PATIENT
  Age: 22149 Day
  Sex: Female

DRUGS (6)
  1. INEXIUM [Suspect]
     Route: 048
     Dates: start: 20140110, end: 20140130
  2. VANCOMYCINE(SANDOZ) [Suspect]
     Indication: STAPHYLOCOCCAL INFECTION
     Route: 042
     Dates: start: 20140115, end: 20140129
  3. PREVISCAN [Concomitant]
  4. PARACETAMOL [Concomitant]
     Dosage: IF NEEDED
  5. CREON [Concomitant]
     Dosage: 25000 U 3 TIMES DAILY (MORNING, MIDDAY AND NIGHT)
  6. CETRIZINE [Concomitant]

REACTIONS (3)
  - Acute generalised exanthematous pustulosis [Recovered/Resolved]
  - Staphylococcal infection [Unknown]
  - Mesenteric vein thrombosis [Unknown]
